FAERS Safety Report 6782849-3 (Version None)
Quarter: 2010Q2

REPORT INFORMATION
  Report Type: 
  Country: None (occurrence: None)
  Receive Date: 20100621
  Receipt Date: 20100614
  Transmission Date: 20101027
  Serious: Yes (Other)
  Sender: FDA-Public Use
  Company Number: US-AMGEN-QUU399536

PATIENT
  Sex: Male
  Weight: 63.1 kg

DRUGS (12)
  1. NPLATE [Suspect]
     Indication: IDIOPATHIC THROMBOCYTOPENIC PURPURA
     Route: 058
     Dates: start: 20090713, end: 20100524
  2. ZESTRIL [Concomitant]
  3. HYDROCHLOROTHIAZIDE [Concomitant]
  4. CREON [Concomitant]
  5. GLUCOPHAGE [Concomitant]
  6. LIPITOR [Concomitant]
  7. COUMADIN [Concomitant]
  8. ZANTAC [Concomitant]
  9. IMDUR [Concomitant]
  10. FISH OIL [Concomitant]
  11. GARLIC [Concomitant]
  12. MULTI-VITAMINS [Concomitant]

REACTIONS (5)
  - INSOMNIA [None]
  - MYALGIA [None]
  - PAIN [None]
  - PAIN IN EXTREMITY [None]
  - THROMBOCYTOPENIA [None]
